FAERS Safety Report 7867989-X (Version None)
Quarter: 2011Q4

REPORT INFORMATION
  Report Type: 
  Country: None (occurrence: None)
  Receive Date: 20111021
  Receipt Date: 20111011
  Transmission Date: 20120403
  Serious: Yes (Other)
  Sender: FDA-Public Use
  Company Number: WAES 1110FRA00022

PATIENT
  Age: 42 Year
  Sex: Male

DRUGS (5)
  1. PANTOPRAZOLE SODIUM [Concomitant]
  2. ISENTRESS [Suspect]
     Indication: PROPHYLAXIS AGAINST HIV INFECTION
     Dosage: 400 MG/BID
     Route: 048
     Dates: start: 20110711, end: 20110808
  3. EMTRICITABINE _ TENOFOVIR DISOPROXIL FUM [Concomitant]
     Dates: start: 20110711, end: 20110808
  4. PRAZEPAM [Concomitant]
  5. ALISKIREN FUMARATE [Concomitant]

REACTIONS (2)
  - DIARRHOEA [None]
  - CARPAL TUNNEL SYNDROME [None]
